FAERS Safety Report 21864784 (Version 3)
Quarter: 2023Q1

REPORT INFORMATION
  Report Type: Spontaneous
  Country: CA (occurrence: CA)
  Receive Date: 20230116
  Receipt Date: 20230316
  Transmission Date: 20230418
  Serious: Yes (Other)
  Sender: FDA-Public Use
  Company Number: CA-CELLTRION INC.-2019CA018512

PATIENT

DRUGS (56)
  1. INFLECTRA [Suspect]
     Active Substance: INFLIXIMAB-DYYB
     Indication: Crohn^s disease
     Dosage: 400 MG, Q (EVERY) 0, 2, 6 THEN EVERY 8 WEEKS
     Route: 042
     Dates: start: 20180811
  2. INFLECTRA [Suspect]
     Active Substance: INFLIXIMAB-DYYB
     Dosage: 400 MG, Q (EVERY) 0, 2, 6 THEN EVERY 8 WEEKS
     Route: 042
     Dates: start: 20180824
  3. INFLECTRA [Suspect]
     Active Substance: INFLIXIMAB-DYYB
     Dosage: 400 MG, Q (EVERY) 0, 2, 6 THEN EVERY 8 WEEKS
     Route: 042
     Dates: start: 20180924
  4. INFLECTRA [Suspect]
     Active Substance: INFLIXIMAB-DYYB
     Dosage: 400 MG, Q (EVERY) 0, 2, 6 THEN EVERY 8 WEEKS
     Route: 042
     Dates: start: 20181119
  5. INFLECTRA [Suspect]
     Active Substance: INFLIXIMAB-DYYB
     Dosage: 400 MG, Q (EVERY) 0, 2, 6 THEN EVERY 8 WEEKS
     Route: 042
     Dates: start: 20190114
  6. INFLECTRA [Suspect]
     Active Substance: INFLIXIMAB-DYYB
     Dosage: 400 MG, Q (EVERY) 0, 2, 6 THEN EVERY 8 WEEKS
     Route: 042
     Dates: start: 20190313
  7. INFLECTRA [Suspect]
     Active Substance: INFLIXIMAB-DYYB
     Dosage: 400 MG, Q (EVERY) 0, 2, 6 THEN EVERY 8 WEEKS
     Route: 042
     Dates: start: 20190509
  8. INFLECTRA [Suspect]
     Active Substance: INFLIXIMAB-DYYB
     Dosage: 400 MG, Q (EVERY) 0, 2, 6 THEN EVERY 8 WEEKS
     Route: 042
     Dates: start: 20190702
  9. INFLECTRA [Suspect]
     Active Substance: INFLIXIMAB-DYYB
     Dosage: 400 MG, Q (EVERY) 0, 2, 6  THEN EVERY 8 WEEKS
     Route: 042
     Dates: start: 20190828
  10. INFLECTRA [Suspect]
     Active Substance: INFLIXIMAB-DYYB
     Dosage: 400 MG, EVERY 6 WEEKS
     Route: 042
     Dates: start: 20191018
  11. INFLECTRA [Suspect]
     Active Substance: INFLIXIMAB-DYYB
     Dosage: 400 MG, EVERY 6 WEEKS
     Route: 042
     Dates: start: 20191128
  12. INFLECTRA [Suspect]
     Active Substance: INFLIXIMAB-DYYB
     Dosage: 400  MG EVERY 6 WEEKS
     Route: 042
     Dates: start: 20200110
  13. INFLECTRA [Suspect]
     Active Substance: INFLIXIMAB-DYYB
     Dosage: 400  MG EVERY 6 WEEKS
     Route: 042
     Dates: start: 20200221
  14. INFLECTRA [Suspect]
     Active Substance: INFLIXIMAB-DYYB
     Dosage: 400  MG EVERY 6 WEEKS
     Route: 042
     Dates: start: 20200221
  15. INFLECTRA [Suspect]
     Active Substance: INFLIXIMAB-DYYB
     Dosage: 400  MG EVERY 6 WEEKS
     Route: 042
     Dates: start: 20200401
  16. INFLECTRA [Suspect]
     Active Substance: INFLIXIMAB-DYYB
     Dosage: 400  MG EVERY 6 WEEKS
     Route: 042
     Dates: start: 20200401
  17. INFLECTRA [Suspect]
     Active Substance: INFLIXIMAB-DYYB
     Dosage: 400  MG EVERY 6 WEEKS
     Route: 042
     Dates: start: 20200513
  18. INFLECTRA [Suspect]
     Active Substance: INFLIXIMAB-DYYB
     Dosage: 400  MG EVERY 6 WEEKS
     Route: 042
     Dates: start: 20200704
  19. INFLECTRA [Suspect]
     Active Substance: INFLIXIMAB-DYYB
     Dosage: 400  MG
     Route: 042
     Dates: start: 20200801
  20. INFLECTRA [Suspect]
     Active Substance: INFLIXIMAB-DYYB
     Dosage: 400  MG
     Route: 042
     Dates: start: 20200801
  21. INFLECTRA [Suspect]
     Active Substance: INFLIXIMAB-DYYB
     Dosage: 400 MG, EVERY 6 WEEKS
     Route: 042
     Dates: start: 20200928
  22. INFLECTRA [Suspect]
     Active Substance: INFLIXIMAB-DYYB
     Dosage: 400 MG, EVERY 6 WEEKS
     Route: 042
     Dates: start: 20201106
  23. INFLECTRA [Suspect]
     Active Substance: INFLIXIMAB-DYYB
     Dosage: 400 MG, EVERY 6 WEEKS
     Route: 042
     Dates: start: 20201218
  24. INFLECTRA [Suspect]
     Active Substance: INFLIXIMAB-DYYB
     Dosage: 400 MG, EVERY 6 WEEKS
     Route: 042
     Dates: start: 20201218
  25. INFLECTRA [Suspect]
     Active Substance: INFLIXIMAB-DYYB
     Dosage: 400 MG, EVERY 6 WEEKS
     Route: 042
     Dates: start: 20210205
  26. INFLECTRA [Suspect]
     Active Substance: INFLIXIMAB-DYYB
     Dosage: 400 MG, EVERY 6 WEEKS
     Route: 042
     Dates: start: 20210205
  27. INFLECTRA [Suspect]
     Active Substance: INFLIXIMAB-DYYB
     Dosage: 400 MG, EVERY 6 WEEKS
     Route: 042
     Dates: start: 20210319
  28. INFLECTRA [Suspect]
     Active Substance: INFLIXIMAB-DYYB
     Dosage: 400 MG, EVERY 6 WEEKS
     Route: 042
     Dates: start: 20210430
  29. INFLECTRA [Suspect]
     Active Substance: INFLIXIMAB-DYYB
     Dosage: 400 MG, EVERY 6 WEEKS
     Route: 042
     Dates: start: 20210624
  30. INFLECTRA [Suspect]
     Active Substance: INFLIXIMAB-DYYB
     Dosage: 400 MG, EVERY 6 WEEKS
     Route: 042
     Dates: start: 20210723
  31. INFLECTRA [Suspect]
     Active Substance: INFLIXIMAB-DYYB
     Dosage: 400 MG, EVERY 6 WEEKS
     Route: 042
     Dates: start: 20210913
  32. INFLECTRA [Suspect]
     Active Substance: INFLIXIMAB-DYYB
     Dosage: 400 MG, EVERY 6 WEEKS
     Route: 042
     Dates: start: 20211015
  33. INFLECTRA [Suspect]
     Active Substance: INFLIXIMAB-DYYB
     Dosage: 400 MG EVERY 6 WEEKS
     Route: 042
     Dates: start: 20220107
  34. INFLECTRA [Suspect]
     Active Substance: INFLIXIMAB-DYYB
     Dosage: 400 MG EVERY 6 WEEKS
     Route: 042
     Dates: start: 20220219
  35. INFLECTRA [Suspect]
     Active Substance: INFLIXIMAB-DYYB
     Dosage: 400 MG EVERY 6 WEEKS
     Route: 042
     Dates: start: 20220219
  36. INFLECTRA [Suspect]
     Active Substance: INFLIXIMAB-DYYB
     Dosage: 400 MG EVERY 6 WEEKS
     Route: 042
     Dates: start: 20220409
  37. INFLECTRA [Suspect]
     Active Substance: INFLIXIMAB-DYYB
     Dosage: 400 MG EVERY 6 WEEKS
     Route: 042
     Dates: start: 20220514
  38. INFLECTRA [Suspect]
     Active Substance: INFLIXIMAB-DYYB
     Dosage: 400 MG EVERY 6 WEEKS
     Route: 042
     Dates: start: 20220709
  39. INFLECTRA [Suspect]
     Active Substance: INFLIXIMAB-DYYB
     Dosage: 400 MG EVERY 6 WEEKS
     Route: 042
     Dates: start: 20220820
  40. INFLECTRA [Suspect]
     Active Substance: INFLIXIMAB-DYYB
     Dosage: 400 MG EVERY 6 WEEKS
     Route: 042
     Dates: start: 20221125
  41. INFLECTRA [Suspect]
     Active Substance: INFLIXIMAB-DYYB
     Dosage: 400 MG EVERY 6 WEEKS
     Route: 042
     Dates: start: 20230107
  42. INFLECTRA [Suspect]
     Active Substance: INFLIXIMAB-DYYB
     Dosage: 400 MG EVERY 6 WEEKS
     Route: 042
     Dates: start: 20230304
  43. ACETAMINOPHEN [Concomitant]
     Active Substance: ACETAMINOPHEN
     Indication: Premedication
     Dosage: 650 MG
     Route: 048
  44. ACETAMINOPHEN [Concomitant]
     Active Substance: ACETAMINOPHEN
     Dosage: 650 MG
     Dates: start: 20200221, end: 20200221
  45. ACETAMINOPHEN [Concomitant]
     Active Substance: ACETAMINOPHEN
     Dosage: 630 MG
     Dates: start: 20200401, end: 20200401
  46. ACETAMINOPHEN [Concomitant]
     Active Substance: ACETAMINOPHEN
     Dosage: 650 MG
     Route: 048
     Dates: start: 20200513
  47. ACETAMINOPHEN [Concomitant]
     Active Substance: ACETAMINOPHEN
     Dosage: 650 MG
     Dates: start: 20200801, end: 20200801
  48. AZATHIOPRINE [Concomitant]
     Active Substance: AZATHIOPRINE
     Dosage: 50 MG
     Dates: start: 20180703, end: 201809
  49. DIPHENHYDRAMINE [Concomitant]
     Active Substance: DIPHENHYDRAMINE
     Indication: Premedication
     Dosage: 50 MG
     Route: 042
     Dates: start: 20200221, end: 20200221
  50. DIPHENHYDRAMINE [Concomitant]
     Active Substance: DIPHENHYDRAMINE
     Dosage: 50 MG
     Dates: start: 20200401, end: 20200401
  51. DIPHENHYDRAMINE [Concomitant]
     Active Substance: DIPHENHYDRAMINE
     Dosage: 50 MG
     Route: 042
     Dates: start: 20200513
  52. DIPHENHYDRAMINE [Concomitant]
     Active Substance: DIPHENHYDRAMINE
     Dosage: 50 MG
     Route: 048
     Dates: start: 20200801, end: 20200801
  53. HYDROCORTISONE [Concomitant]
     Active Substance: HYDROCORTISONE
     Indication: Premedication
     Dosage: 100 MG
     Route: 042
     Dates: start: 20200221, end: 20200221
  54. HYDROCORTISONE [Concomitant]
     Active Substance: HYDROCORTISONE
     Dosage: 100 MG
     Dates: start: 20200401, end: 20200401
  55. HYDROCORTISONE [Concomitant]
     Active Substance: HYDROCORTISONE
     Dosage: 100 MG
     Route: 042
     Dates: start: 20200513
  56. HYDROCORTISONE [Concomitant]
     Active Substance: HYDROCORTISONE
     Dosage: 100 MG
     Route: 042
     Dates: start: 20200801, end: 20200801

REACTIONS (15)
  - Muscle rupture [Recovering/Resolving]
  - Therapeutic response shortened [Unknown]
  - Off label use [Unknown]
  - Off label use [Unknown]
  - Intentional product use issue [Unknown]
  - Inappropriate schedule of product administration [Unknown]
  - Product dose omission issue [Unknown]
  - Blood pressure increased [Not Recovered/Not Resolved]
  - Heart rate increased [Unknown]
  - Nasopharyngitis [Recovering/Resolving]
  - Nasal congestion [Not Recovered/Not Resolved]
  - Limb injury [Unknown]
  - Arthralgia [Unknown]
  - Condition aggravated [Not Recovered/Not Resolved]
  - Accident at work [Unknown]

NARRATIVE: CASE EVENT DATE: 20190114
